FAERS Safety Report 16559101 (Version 3)
Quarter: 2019Q4

REPORT INFORMATION
  Report Type: Spontaneous
  Country: US (occurrence: US)
  Receive Date: 20190711
  Receipt Date: 20191101
  Transmission Date: 20200122
  Serious: Yes (Hospitalization)
  Sender: FDA-Public Use
  Company Number: US-JNJFOC-20190704898

PATIENT
  Sex: Male

DRUGS (2)
  1. ERDAFITINIB. [Suspect]
     Active Substance: ERDAFITINIB
     Indication: PRODUCT USED FOR UNKNOWN INDICATION
     Route: 048
  2. ERDAFITINIB. [Suspect]
     Active Substance: ERDAFITINIB
     Route: 048

REACTIONS (4)
  - Asthenia [Unknown]
  - Dry skin [Unknown]
  - Nail discolouration [Unknown]
  - Skin fissures [Unknown]
